FAERS Safety Report 7234000-3 (Version None)
Quarter: 2011Q1

REPORT INFORMATION
  Report Type: 
  Country: None (occurrence: None)
  Receive Date: 20110113
  Receipt Date: 20110113
  Transmission Date: 20110831
  Serious: Yes (Other)
  Sender: FDA-Public Use
  Company Number: None

PATIENT
  Age: 40 Year
  Sex: Male
  Weight: 74.8435 kg

DRUGS (1)
  1. CLEAR EYES 8HOURS CLEAR EYES [Suspect]
     Indication: DRY EYE
     Dosage: 1 EYE DROP ON EACH EYE ONCE EVERYDAY
     Dates: start: 20110106, end: 20110112

REACTIONS (3)
  - EYE PAIN [None]
  - DRUG DEPENDENCE [None]
  - HEADACHE [None]
